FAERS Safety Report 8719465 (Version 2)
Quarter: 2012Q4

REPORT INFORMATION
  Report Type: 
  Country: US (occurrence: US)
  Receive Date: 20120813
  Receipt Date: 20121016
  Transmission Date: 20130627
  Serious: Yes (Hospitalization)
  Sender: FDA-Public Use
  Company Number: US-ELI_LILLY_AND_COMPANY-US201207001874

PATIENT
  Age: 65 Year
  Sex: Female

DRUGS (7)
  1. CYMBALTA [Suspect]
     Indication: FIBROMYALGIA
     Dosage: 30 mg, qd
     Dates: start: 20120621, end: 20120628
  2. METFORMIN [Concomitant]
     Indication: DIABETES MELLITUS
     Dosage: 500 mg, bid
  3. COZAAR [Concomitant]
     Indication: DIABETES MELLITUS
     Dosage: 100 mg, qd
  4. ASPIRIN [Concomitant]
     Dosage: 81 mg, qd
  5. LYRICA [Concomitant]
     Indication: FIBROMYALGIA
     Dosage: 50 mg, bid
  6. IBUPROFEN [Concomitant]
     Dosage: 200 mg, prn
  7. OTHER MINERAL SUPPLEMENTS [Concomitant]

REACTIONS (12)
  - Blood pressure abnormal [Recovered/Resolved]
  - Sinus bradycardia [Recovered/Resolved]
  - Presyncope [Recovered/Resolved]
  - Balance disorder [Recovered/Resolved]
  - Blister [Unknown]
  - Blood glucose increased [Recovered/Resolved]
  - Nausea [Recovered/Resolved]
  - Dizziness [Recovered/Resolved]
  - Hot flush [Unknown]
  - Vertigo [Unknown]
  - Drug withdrawal syndrome [Unknown]
  - Insomnia [Unknown]
